FAERS Safety Report 8485388-7 (Version None)
Quarter: 2012Q3

REPORT INFORMATION
  Report Type: 
  Country: None (occurrence: None)
  Receive Date: 20120703
  Receipt Date: 20120621
  Transmission Date: 20120928
  Serious: Yes (Hospitalization)
  Sender: FDA-Public Use
  Company Number: CN-MYLANLABS-2012S1012954

PATIENT
  Age: 27 Year
  Sex: Female

DRUGS (5)
  1. PREDNISONE [Suspect]
     Dosage: 40 MG/DAY
     Route: 065
  2. CYCLOPHOSPHAMIDE [Suspect]
     Dosage: 0.4 GRAMS/WEEK
     Route: 065
  3. PREDNISONE [Suspect]
     Dosage: 30-45MG/DAY
     Route: 065
  4. HYDROXYCHLOROQUINE SULFATE [Suspect]
     Dosage: 0.2 GRAMS/DAY
     Route: 065
  5. AZATHIOPRINE [Suspect]
     Dosage: 0.1 GRAMS/DAY
     Route: 048

REACTIONS (4)
  - OEDEMA PERIPHERAL [None]
  - OEDEMA [None]
  - PHAEHYPHOMYCOSIS [None]
  - CUSHINGOID [None]
